FAERS Safety Report 22245447 (Version 3)
Quarter: 2023Q2

REPORT INFORMATION
  Report Type: Spontaneous
  Country: JP (occurrence: JP)
  Receive Date: 20230424
  Receipt Date: 20230529
  Transmission Date: 20230721
  Serious: Yes (Other)
  Sender: FDA-Public Use
  Company Number: JP-GLAXOSMITHKLINE-JP2023JPN057060

PATIENT

DRUGS (14)
  1. DAPRODUSTAT [Suspect]
     Active Substance: DAPRODUSTAT
     Dosage: 4 MG, QD
     Route: 048
     Dates: start: 20230222, end: 20230323
  2. MIRCERA INJECTION [Concomitant]
     Indication: Nephrogenic anaemia
     Dosage: 200 ?G, Q4W
     Dates: end: 202301
  3. MIRCERA INJECTION [Concomitant]
     Dosage: 50 ?G
     Dates: start: 20230323
  4. TRAZENTA TABLETS [Concomitant]
     Dosage: UNK
  5. GLUFAST TABLET [Concomitant]
     Dosage: UNK, QD, JUST BEFORE DINNER
  6. VONOPRAZAN FUMARATE [Concomitant]
     Active Substance: VONOPRAZAN FUMARATE
     Dosage: UNK
  7. FEBUXOSTAT [Concomitant]
     Active Substance: FEBUXOSTAT
     Dosage: UNK
  8. LOSARTAN POTASSIUM [Concomitant]
     Active Substance: LOSARTAN POTASSIUM
     Dosage: UNK
  9. SODIUM FERROUS CITRATE [Concomitant]
     Active Substance: SODIUM FERROUS CITRATE
     Dosage: UNK, BID
  10. BISOPROLOL FUMARATE TABLET [Concomitant]
     Dosage: 5 MG, QD
  11. CALCITRIOL [Concomitant]
     Active Substance: CALCITRIOL
     Dosage: UNK
  12. FUROSEMIDE [Concomitant]
     Active Substance: FUROSEMIDE
     Dosage: UNK
  13. DIANEAL [Concomitant]
     Active Substance: CALCIUM CHLORIDE\DEXTROSE\MAGNESIUM CHLORIDE\SODIUM CHLORIDE\SODIUM LACTATE
     Dosage: UNK
  14. EXTRANEAL [Concomitant]
     Active Substance: CALCIUM CHLORIDE\ICODEXTRIN\MAGNESIUM CHLORIDE\SODIUM CHLORIDE\SODIUM LACTATE
     Dosage: UNK

REACTIONS (2)
  - Retinal haemorrhage [Recovering/Resolving]
  - Visual impairment [Unknown]

NARRATIVE: CASE EVENT DATE: 20230301
